FAERS Safety Report 4854586-3 (Version None)
Quarter: 2005Q4

REPORT INFORMATION
  Report Type: 
  Country: None (occurrence: None)
  Receive Date: 20051215
  Receipt Date: 20050819
  Transmission Date: 20060501
  Serious: Yes (Death, Hospitalization, Other)
  Sender: FDA-Public Use
  Company Number: US-BRISTOL-MYERS SQUIBB COMPANY-13084298

PATIENT
  Age: 68 Year
  Sex: Female

DRUGS (15)
  1. ENTECAVIR [Suspect]
     Indication: HEPATITIS B
     Route: 048
     Dates: start: 20050712, end: 20050815
  2. PLAVIX [Suspect]
     Route: 048
     Dates: start: 19980820
  3. ASPIRIN [Concomitant]
     Dosage: ENTERIC COATED (EC).
     Route: 048
     Dates: start: 20030825
  4. CARDIZEM CD [Concomitant]
     Dosage: CP24
     Route: 048
     Dates: start: 20031230
  5. COLACE [Concomitant]
     Route: 048
     Dates: start: 20030915
  6. DOCUSATE SODIUM [Concomitant]
     Route: 048
     Dates: start: 20030424
  7. FLOVENT [Concomitant]
     Dosage: 220 MCG/ACT AERO 2 PUFFS TWICE DAILY.
     Route: 055
     Dates: start: 20050209
  8. FORADIL [Concomitant]
     Dosage: FORADIL AEROLIZER 12 MCG CAPSULES.
     Route: 055
     Dates: start: 20040209
  9. FUROSEMIDE [Concomitant]
     Route: 048
     Dates: start: 20050707
  10. GLUCOTROL [Concomitant]
     Route: 048
     Dates: start: 20050427
  11. LISINOPRIL [Concomitant]
     Route: 048
     Dates: start: 20030825
  12. MIRALAX [Concomitant]
     Dosage: ONE HEAPING TEASPOON FULL IN 8 OZ WATER. HOLD FOR LOOSE STOOL.
     Route: 048
     Dates: start: 20030424
  13. PEPCID [Concomitant]
     Route: 048
     Dates: start: 20040209
  14. RISPERDAL [Concomitant]
     Route: 048
     Dates: start: 20030424
  15. ZYRTEC [Concomitant]
     Dosage: CHEW.
     Route: 048
     Dates: start: 20050202

REACTIONS (3)
  - GASTRIC VARICES HAEMORRHAGE [None]
  - OESOPHAGEAL VARICES HAEMORRHAGE [None]
  - PLATELET COUNT DECREASED [None]
